FAERS Safety Report 9854945 (Version 1)
Quarter: 2013Q4

REPORT INFORMATION
  Report Type: Spontaneous
  Country: US (occurrence: None)
  Receive Date: 20131226
  Receipt Date: 20131226
  Transmission Date: 20140711
  Serious: Yes (Other)
  Sender: FDA-Public Use
  Company Number: PHEH2013US012043

PATIENT
  Age: 83 Year
  Sex: Female
  Weight: 51 kg

DRUGS (3)
  1. AFINITOR (RAD) TABLET, 10MG [Suspect]
     Indication: BREAST CANCER
     Route: 048
  2. EXEMESTANE [Suspect]
  3. AMLODIPINE (AMLODIPINE) [Concomitant]

REACTIONS (2)
  - Blood glucose increased [None]
  - Rash [None]
